FAERS Safety Report 15226257 (Version 1)
Quarter: 2018Q3

REPORT INFORMATION
  Report Type: Spontaneous
  Country: US (occurrence: US)
  Receive Date: 20180801
  Receipt Date: 20180801
  Transmission Date: 20181010
  Serious: Yes (Death, Other)
  Sender: FDA-Public Use
  Company Number: US-BAYER-2018-138655

PATIENT

DRUGS (1)
  1. PARACETAMOL [Suspect]
     Active Substance: ACETAMINOPHEN
     Dosage: 30 G, UNK
     Route: 064

REACTIONS (5)
  - Toxicity to various agents [Fatal]
  - Liver injury [Fatal]
  - Foetal heart rate deceleration abnormality [Unknown]
  - Maternal exposure during pregnancy [Unknown]
  - Placental insufficiency [Fatal]
